FAERS Safety Report 23936307 (Version 4)
Quarter: 2025Q4

REPORT INFORMATION
  Report Type: Report from Study
  Country: CO (occurrence: CO)
  Receive Date: 20240604
  Receipt Date: 20251127
  Transmission Date: 20260118
  Serious: Yes (Hospitalization, Other)
  Sender: AMGEN
  Company Number: CO-AMGEN-COLSL2024107398

PATIENT
  Age: 68 Year
  Sex: Male

DRUGS (2)
  1. VECTIBIX [Suspect]
     Active Substance: PANITUMUMAB
     Indication: Colorectal cancer metastatic
     Dosage: 391 MILLIGRAM, Q2WK
     Route: 042
     Dates: start: 20240130, end: 20240917
  2. VECTIBIX [Suspect]
     Active Substance: PANITUMUMAB
     Dosage: 391 MILLIGRAM, Q2WK
     Route: 042
     Dates: start: 20241105, end: 20250702

REACTIONS (3)
  - Rectal haemorrhage [Not Recovered/Not Resolved]
  - Intestinal obstruction [Not Recovered/Not Resolved]
  - Vomiting [Not Recovered/Not Resolved]

NARRATIVE: CASE EVENT DATE: 20240527
